FAERS Safety Report 19076275 (Version 1)
Quarter: 2021Q1

REPORT INFORMATION
  Report Type: Spontaneous
  Country: PL (occurrence: PL)
  Receive Date: 20210331
  Receipt Date: 20210331
  Transmission Date: 20210420
  Serious: Yes (Life-Threatening)
  Sender: FDA-Public Use
  Company Number: PL-NEBO-PC006674

PATIENT
  Age: 43 Year
  Sex: Male
  Weight: 67.5 kg

DRUGS (1)
  1. DIAFER [IRON ISOMALTOSIDE 1000] [Suspect]
     Active Substance: IRON ISOMALTOSIDE 1000
     Indication: ANAEMIA
     Dosage: PATIENT WAS GIVEN A 100 MG DOSE OF DIAFER ON 2020/02/14 AND 2020/02/16 ALSO
     Route: 042
     Dates: start: 20200214, end: 20200227

REACTIONS (5)
  - Chest pain [Recovered/Resolved]
  - Dysgeusia [Recovered/Resolved]
  - Paraesthesia [Recovered/Resolved]
  - Visual impairment [Recovered/Resolved]
  - Abdominal pain [Recovered/Resolved]

NARRATIVE: CASE EVENT DATE: 20200227
